FAERS Safety Report 9347821 (Version 1)
Quarter: 2013Q2

REPORT INFORMATION
  Report Type: Spontaneous
  Country: US (occurrence: US)
  Receive Date: 20130614
  Receipt Date: 20130614
  Transmission Date: 20140414
  Serious: No
  Sender: FDA-Public Use
  Company Number: US-PFIZER INC-2013177204

PATIENT
  Age: 79 Year
  Sex: Female

DRUGS (7)
  1. NEURONTIN [Suspect]
     Dosage: UNK
  2. AZITHROMYCIN [Suspect]
     Dosage: UNK
  3. ERYTHROMYCIN [Suspect]
     Dosage: UNK
  4. CLARITHROMYCIN [Suspect]
     Dosage: UNK
  5. LISINOPRIL [Suspect]
     Dosage: UNK
  6. BROMFED [Suspect]
     Dosage: UNK
  7. LEVAQUIN [Suspect]
     Dosage: UNK

REACTIONS (1)
  - Drug hypersensitivity [Unknown]
